FAERS Safety Report 11696846 (Version 2)
Quarter: 2015Q4

REPORT INFORMATION
  Report Type: Spontaneous
  Country: FR (occurrence: FR)
  Receive Date: 20151104
  Receipt Date: 20151110
  Transmission Date: 20160304
  Serious: Yes (Other)
  Sender: FDA-Public Use
  Company Number: FR-JNJFOC-20151015715

PATIENT

DRUGS (1)
  1. INFLIXIMAB, RECOMBINANT [Suspect]
     Active Substance: INFLIXIMAB
     Indication: COLITIS ULCERATIVE
     Dosage: 0, 2, AND 6 WEEKS FOLLOWED BY A 6-MONTH REMISSION WITH SCHEDULED MAINTENANCE EVERY 8 WEEKS
     Route: 042

REACTIONS (3)
  - Colitis ulcerative [Unknown]
  - Colectomy [Unknown]
  - Drug ineffective [Unknown]
